FAERS Safety Report 22279960 (Version 1)
Quarter: 2023Q2

REPORT INFORMATION
  Report Type: Spontaneous
  Country: SE (occurrence: None)
  Receive Date: 20230503
  Receipt Date: 20230503
  Transmission Date: 20230721
  Serious: Yes (Other)
  Sender: FDA-Public Use
  Company Number: 2023A095562

PATIENT
  Age: 82 Year
  Sex: Male
  Weight: 66.7 kg

DRUGS (5)
  1. DAPAGLIFLOZIN [Suspect]
     Active Substance: DAPAGLIFLOZIN
     Indication: Cardiac failure
     Dosage: 1 ST
     Dates: start: 20220902, end: 20230319
  2. EPLERENONE [Suspect]
     Active Substance: EPLERENONE
     Indication: Cardiac failure
     Dosage: 1 ST
     Dates: start: 20220902, end: 20230330
  3. METOPROLOL [Concomitant]
     Active Substance: METOPROLOL
     Dates: start: 202008
  4. FURIX [Concomitant]
     Dates: start: 202008
  5. CANDESARTAN [Concomitant]
     Active Substance: CANDESARTAN
     Dates: start: 202008

REACTIONS (14)
  - Diarrhoea [Recovered/Resolved]
  - Muscular weakness [Unknown]
  - Weight decreased [Unknown]
  - Fatigue [Not Recovered/Not Resolved]
  - Memory impairment [Unknown]
  - Balance disorder [Unknown]
  - Vomiting [Unknown]
  - Muscle spasms [Unknown]
  - Abdominal discomfort [Unknown]
  - Nausea [Unknown]
  - Mood swings [Unknown]
  - Apathy [Unknown]
  - Dry mouth [Unknown]
  - Dysphagia [Unknown]

NARRATIVE: CASE EVENT DATE: 20220901
